FAERS Safety Report 8133816-9 (Version None)
Quarter: 2012Q1

REPORT INFORMATION
  Report Type: 
  Country: None (occurrence: None)
  Receive Date: 20120213
  Receipt Date: 20120213
  Transmission Date: 20120608
  Serious: Yes (Other)
  Sender: FDA-Public Use
  Company Number: None

PATIENT
  Sex: Male
  Weight: 8.6182 kg

DRUGS (2)
  1. HYLAND'S TEETHING TABLETS [Suspect]
     Indication: PAIN
     Dosage: 2-3 TABLETS
     Route: 060
     Dates: start: 20120211, end: 20120211
  2. HYLAND'S TEETHING TABLETS [Suspect]
     Indication: DISCOMFORT
     Dosage: 2-3 TABLETS
     Route: 060
     Dates: start: 20120211, end: 20120211

REACTIONS (2)
  - CONVULSION [None]
  - POISONING [None]
